FAERS Safety Report 4341812-2 (Version None)
Quarter: 2004Q2

REPORT INFORMATION
  Report Type: 
  Country: None (occurrence: None)
  Receive Date: 20040420
  Receipt Date: 20020930
  Transmission Date: 20050107
  Serious: Yes (Hospitalization, Disabling)
  Sender: FDA-Public Use
  Company Number: DE-GLAXOSMITHKLINE-D0039489A

PATIENT
  Age: 22 Year
  Sex: Female
  Weight: 74 kg

DRUGS (6)
  1. LAMICTAL [Suspect]
     Indication: EPILEPSY
     Dosage: 200MG TWICE PER DAY
     Route: 048
     Dates: start: 19981201
  2. VALPROIC ACID [Suspect]
     Indication: EPILEPSY
     Dosage: 900MG PER DAY
     Route: 048
     Dates: start: 19940101, end: 19980101
  3. ALESSE [Concomitant]
     Route: 065
     Dates: start: 20000101
  4. FOLIC ACID [Concomitant]
     Route: 048
     Dates: start: 20020101
  5. VITAMIN D [Concomitant]
     Dosage: 1000IU PER DAY
     Route: 065
     Dates: start: 19980101
  6. DIANE [Concomitant]
     Route: 048

REACTIONS (17)
  - ASPIRATION BONE MARROW ABNORMAL [None]
  - BONE DISORDER [None]
  - BONE PAIN [None]
  - COMPRESSION FRACTURE [None]
  - CONVULSION [None]
  - FEMORAL NECK FRACTURE [None]
  - FEMUR FRACTURE [None]
  - FOOT FRACTURE [None]
  - LEUKOPENIA [None]
  - MYELODYSPLASTIC SYNDROME [None]
  - NORMOCHROMIC NORMOCYTIC ANAEMIA [None]
  - OSTEOMALACIA [None]
  - OSTEOPENIA [None]
  - OSTEOSCLEROSIS [None]
  - PELVIC FRACTURE [None]
  - SPINAL COMPRESSION FRACTURE [None]
  - THROMBOCYTHAEMIA [None]
